FAERS Safety Report 6034908-0 (Version None)
Quarter: 2009Q1

REPORT INFORMATION
  Report Type: 
  Country: None (occurrence: None)
  Receive Date: 20090112
  Receipt Date: 20080422
  Transmission Date: 20090719
  Serious: No
  Sender: FDA-Public Use
  Company Number: US-BAYER-200811906BCC

PATIENT
  Age: 80 Year
  Sex: Female
  Weight: 88 kg

DRUGS (8)
  1. PHILLIPS MILK OF MAGNESIA NON-CONCENTRATED LIQUID WILD CHERRY [Suspect]
     Indication: CONSTIPATION
     Dosage: AS USED: 60 ML
     Route: 048
     Dates: start: 20020101
  2. ALEVE (CAPLET) [Suspect]
     Indication: ARTHRALGIA
     Dosage: TOTAL DAILY DOSE: 440 MG  UNIT DOSE: 220 MG
     Route: 048
     Dates: start: 20070601
  3. FUROSEMIDE [Concomitant]
  4. WARFARIN [Concomitant]
  5. SPIRONOLACTONE [Concomitant]
  6. SYNTHROID [Concomitant]
  7. SIMVASTATIN [Concomitant]
  8. AMIODARONE HCL [Concomitant]

REACTIONS (1)
  - CONSTIPATION [None]
